FAERS Safety Report 8385861 (Version 4)
Quarter: 2012Q4

REPORT INFORMATION
  Report Type: 
  Country: CA (occurrence: CA)
  Receive Date: 20120202
  Receipt Date: 20120926
  Transmission Date: 20130627
  Serious: Yes (Hospitalization, Other)
  Sender: FDA-Public Use
  Company Number: PHHY2012CA007201

PATIENT
  Age: 35 Year
  Sex: Female

DRUGS (5)
  1. GILENYA [Suspect]
     Indication: RELAPSING-REMITTING MULTIPLE SCLEROSIS
     Dosage: 0.5 mg, UNK
     Dates: start: 20110507
  2. COVERSYL [Concomitant]
     Indication: HYPERTENSION
     Dosage: 4 mg, QD
     Route: 048
  3. ZOLOFT [Concomitant]
     Indication: DEPRESSION
     Dosage: UNK UKN, UNK
  4. ZOPICLONE [Concomitant]
     Dosage: 7.5 mg, QD
  5. SYNTHROID [Concomitant]

REACTIONS (10)
  - Grand mal convulsion [Unknown]
  - Tonic clonic movements [Unknown]
  - Loss of consciousness [Unknown]
  - Tremor [Unknown]
  - Confusional state [Unknown]
  - Lymphocyte count decreased [Unknown]
  - Joint dislocation [Unknown]
  - Alanine aminotransferase increased [Unknown]
  - Gamma-glutamyltransferase increased [Unknown]
  - Alopecia [Unknown]
